FAERS Safety Report 5140887-0 (Version None)
Quarter: 2006Q4

REPORT INFORMATION
  Report Type: 
  Country: None (occurrence: None)
  Receive Date: 20060905
  Receipt Date: 20060718
  Transmission Date: 20070319
  Serious: No
  Sender: FDA-Public Use
  Company Number: 06P-163-0338306-00

PATIENT

DRUGS (1)
  1. TRICOR [Suspect]
     Indication: BLOOD CHOLESTEROL INCREASED
     Dosage: 145 MG, 1 IN 1 D

REACTIONS (1)
  - HEPATITIS [None]
